FAERS Safety Report 9323785 (Version 3)
Quarter: 2013Q2

REPORT INFORMATION
  Report Type: Report from Study
  Country: CA (occurrence: CA)
  Receive Date: 20130603
  Receipt Date: 20130621
  Transmission Date: 20140414
  Serious: Yes (Other)
  Sender: FDA-Public Use
  Company Number: CA-JNJFOC-20130517740

PATIENT
  Age: 25 Year
  Sex: Female
  Weight: 51 kg

DRUGS (7)
  1. REMICADE [Suspect]
     Indication: CROHN^S DISEASE
     Route: 042
     Dates: start: 20130528
  2. REMICADE [Suspect]
     Indication: CROHN^S DISEASE
     Dosage: 32ND INFUSION
     Route: 042
     Dates: start: 20130322
  3. REMICADE [Suspect]
     Indication: CROHN^S DISEASE
     Route: 042
     Dates: start: 20080101
  4. CYCLEN [Concomitant]
     Indication: CONTRACEPTION
     Route: 065
  5. BENADRYL [Concomitant]
     Indication: PREMEDICATION
     Route: 042
  6. ACETAMINOPHEN [Concomitant]
     Indication: PREMEDICATION
     Route: 042
  7. SOLU MEDROL [Concomitant]
     Indication: PREMEDICATION
     Route: 042

REACTIONS (6)
  - Syncope [Unknown]
  - Hypotension [Unknown]
  - Heart rate decreased [Not Recovered/Not Resolved]
  - Dyspnoea exertional [Not Recovered/Not Resolved]
  - Chest discomfort [Not Recovered/Not Resolved]
  - Chest pain [Recovered/Resolved]
